FAERS Safety Report 6736119-X (Version None)
Quarter: 2010Q2

REPORT INFORMATION
  Report Type: 
  Country: None (occurrence: None)
  Receive Date: 20100521
  Receipt Date: 20100513
  Transmission Date: 20101027
  Serious: Yes (Hospitalization, Other)
  Sender: FDA-Public Use
  Company Number: JP-JNJFOC-20090403546

PATIENT
  Sex: Male
  Weight: 24.49 kg

DRUGS (14)
  1. DUROTEP MT PATCH [Suspect]
     Indication: CANCER PAIN
     Route: 062
  2. MORPHINE HYDROCHLORIDE [Suspect]
     Indication: DRUG USE FOR UNKNOWN INDICATION
     Route: 058
  3. TS-1 [Concomitant]
     Indication: LUNG NEOPLASM MALIGNANT
     Route: 048
  4. TS-1 [Concomitant]
     Route: 048
  5. GASMOTIN [Concomitant]
     Indication: NAUSEA
     Route: 048
  6. CEROCRAL [Concomitant]
     Indication: PAIN
     Route: 048
  7. MAGMITT [Concomitant]
     Indication: CONSTIPATION PROPHYLAXIS
     Route: 048
  8. PROCHLORPERAZINE [Concomitant]
     Indication: PROPHYLAXIS OF NAUSEA AND VOMITING
     Route: 048
  9. PROCHLORPERAZINE [Concomitant]
     Route: 048
  10. PARIET [Concomitant]
     Indication: PROPHYLAXIS
     Route: 048
  11. VOLTAREN [Concomitant]
     Indication: PAIN
     Route: 048
  12. DRAMAMINE [Concomitant]
     Indication: NAUSEA
     Route: 048
  13. FAMOTIDINE [Concomitant]
     Indication: PROPHYLAXIS
     Route: 048
  14. MUCOSAL (AMBROXOL HYDROCHLORIDE) [Concomitant]
     Indication: PRODUCTIVE COUGH
     Route: 048

REACTIONS (3)
  - EOSINOPHIL COUNT INCREASED [None]
  - NEUTROPENIA [None]
  - NEUTROPHILIA [None]
